FAERS Safety Report 8370301-3 (Version None)
Quarter: 2012Q2

REPORT INFORMATION
  Report Type: 
  Country: None (occurrence: None)
  Receive Date: 20120518
  Receipt Date: 20111109
  Transmission Date: 20120825
  Serious: No
  Sender: FDA-Public Use
  Company Number: US-ASTRAZENECA-2011SE73747

PATIENT
  Age: 81 Year
  Sex: Female

DRUGS (2)
  1. PREDNISONE [Concomitant]
     Dosage: UNKNOWN
  2. PRILOSEC OTC [Suspect]
     Dosage: 1 TABLET, 1 ONLY FOR 1 DAY
     Route: 048
     Dates: start: 20111107, end: 20111107

REACTIONS (2)
  - FEELING ABNORMAL [None]
  - FATIGUE [None]
